FAERS Safety Report 7413152-6 (Version None)
Quarter: 2011Q2

REPORT INFORMATION
  Report Type: 
  Country: None (occurrence: None)
  Receive Date: 20110408
  Receipt Date: 20110408
  Transmission Date: 20111010
  Serious: Yes (Life-Threatening)
  Sender: FDA-Public Use
  Company Number: None

PATIENT
  Age: 65 Year
  Sex: Male
  Weight: 70 kg

DRUGS (1)
  1. LEVETIRACETAM [Suspect]
     Dosage: 500 MG BID PO
     Route: 048
     Dates: start: 20081221, end: 20081223

REACTIONS (2)
  - MENTAL STATUS CHANGES [None]
  - AGITATION [None]
